FAERS Safety Report 6131283-8 (Version None)
Quarter: 2009Q1

REPORT INFORMATION
  Report Type: 
  Country: None (occurrence: None)
  Receive Date: 20090325
  Receipt Date: 20080417
  Transmission Date: 20090719
  Serious: Yes (Life-Threatening)
  Sender: FDA-Public Use
  Company Number: US-BRISTOL-MYERS SQUIBB COMPANY-14088165

PATIENT
  Age: 71 Year
  Sex: Male

DRUGS (3)
  1. ERBITUX [Suspect]
     Indication: COLON CANCER
     Dosage: 800 MG
     Route: 042
     Dates: start: 20080220, end: 20080220
  2. DECADRON [Concomitant]
  3. BENADRYL [Concomitant]

REACTIONS (1)
  - PULSE ABSENT [None]
